FAERS Safety Report 5097092-6 (Version None)
Quarter: 2006Q3

REPORT INFORMATION
  Report Type: 
  Country: None (occurrence: None)
  Receive Date: 20060901
  Receipt Date: 20060818
  Transmission Date: 20061208
  Serious: Yes (Other)
  Sender: FDA-Public Use
  Company Number: US200608003880

PATIENT
  Age: 64 Year
  Sex: Female

DRUGS (3)
  1. XIGRIS [Suspect]
     Indication: SEPSIS
     Dosage: INTRAVENOUS
     Route: 042
     Dates: start: 20060817, end: 20060818
  2. DOPAMINE HCL [Concomitant]
  3. LEVOPHED [Concomitant]

REACTIONS (3)
  - HAEMATOCRIT DECREASED [None]
  - HAEMOGLOBIN DECREASED [None]
  - PLATELET COUNT DECREASED [None]
